FAERS Safety Report 9196854 (Version 8)
Quarter: 2013Q3

REPORT INFORMATION
  Report Type: Report from Study
  Country: DE (occurrence: DE)
  Receive Date: 20130328
  Receipt Date: 20130725
  Transmission Date: 20140515
  Serious: Yes (Hospitalization)
  Sender: FDA-Public Use
  Company Number: PHHO2013DE004079

PATIENT
  Sex: Female
  Weight: 87 kg

DRUGS (4)
  1. RAD001 [Suspect]
     Indication: TUBEROUS SCLEROSIS
     Dosage: 10 MG, QD
     Route: 048
     Dates: start: 20110927, end: 20130307
  2. RAD001 [Suspect]
     Dosage: NO TREATMENT
     Dates: start: 20130307, end: 20130324
  3. RAD001 [Suspect]
     Dosage: 10 MG, QD
     Route: 048
     Dates: start: 20130325
  4. PLACEBO [Suspect]
     Indication: TUBEROUS SCLEROSIS
     Dosage: UNK
     Route: 048
     Dates: start: 20101213

REACTIONS (2)
  - Ovarian cyst [Recovered/Resolved]
  - Endometrial hyperplasia [Recovered/Resolved]
